FAERS Safety Report 7128568-5 (Version None)
Quarter: 2010Q4

REPORT INFORMATION
  Report Type: 
  Country: None (occurrence: None)
  Receive Date: 20101130
  Receipt Date: 20101119
  Transmission Date: 20110411
  Serious: Yes (Other)
  Sender: FDA-Public Use
  Company Number: US-JNJFOC-20091103699

PATIENT
  Sex: Male

DRUGS (3)
  1. LEVAQUIN [Suspect]
     Indication: THERMAL BURN
     Route: 048
  2. LEVAQUIN [Suspect]
     Indication: LOCALISED INFECTION
     Route: 048
  3. CIPROFLOXACIN [Suspect]
     Indication: INFECTION
     Route: 065

REACTIONS (6)
  - BURSITIS [None]
  - EXOSTOSIS [None]
  - JOINT RANGE OF MOTION DECREASED [None]
  - PAIN [None]
  - TENDON RUPTURE [None]
  - TENDONITIS [None]
